FAERS Safety Report 7469535-1 (Version None)
Quarter: 2011Q2

REPORT INFORMATION
  Report Type: 
  Country: None (occurrence: None)
  Receive Date: 20110510
  Receipt Date: 20110427
  Transmission Date: 20111010
  Serious: Yes (Hospitalization)
  Sender: FDA-Public Use
  Company Number: PHHY2011GB36385

PATIENT
  Age: 21 Year
  Sex: Male

DRUGS (6)
  1. QUETIAPINE [Suspect]
  2. CLOZAPINE [Suspect]
     Dosage: 500 MG, DAILY
  3. HALOPERIDOL [Suspect]
  4. AMISULPRIDE [Suspect]
     Dosage: 100 MG, UNK
  5. AMISULPRIDE [Suspect]
     Dosage: 200 MG, NOCTE
  6. RISPERIDONE [Suspect]
     Dosage: 1 MG, BID

REACTIONS (14)
  - POSTURING [None]
  - NOCTURIA [None]
  - ILLUSION [None]
  - PARANOIA [None]
  - PSYCHOTIC DISORDER [None]
  - POLLAKIURIA [None]
  - WEIGHT DECREASED [None]
  - IMPAIRED SELF-CARE [None]
  - POSTURE ABNORMAL [None]
  - SPEECH DISORDER [None]
  - WAXY FLEXIBILITY [None]
  - DRUG INEFFECTIVE [None]
  - HALLUCINATION, AUDITORY [None]
  - ABNORMAL BEHAVIOUR [None]
